FAERS Safety Report 8803842 (Version 1)
Quarter: 2012Q4

REPORT INFORMATION
  Report Type: 
  Country: DK (occurrence: DK)
  Receive Date: 20120924
  Receipt Date: 20120924
  Transmission Date: 20130627
  Serious: Yes (Other)
  Sender: FDA-Public Use
  Company Number: DK-009507513-2010SP055736

PATIENT
  Sex: Male

DRUGS (1)
  1. TRILAFON [Suspect]
     Indication: SCHIZOPHRENIA

REACTIONS (4)
  - Neurological examination abnormal [Unknown]
  - Dyspnoea [Unknown]
  - Hypotonia [Unknown]
  - Muscular weakness [Unknown]
